FAERS Safety Report 7022822-3 (Version None)
Quarter: 2010Q3

REPORT INFORMATION
  Report Type: 
  Country: None (occurrence: None)
  Receive Date: 20100930
  Receipt Date: 20100917
  Transmission Date: 20110219
  Serious: Yes (Death, Life-Threatening, Hospitalization)
  Sender: FDA-Public Use
  Company Number: B0659632A

PATIENT
  Sex: Male
  Weight: 39 kg

DRUGS (6)
  1. LAPATINIB [Suspect]
     Indication: GASTRIC CANCER
     Dosage: 1250MG PER DAY
     Route: 048
     Dates: start: 20100514, end: 20100531
  2. CAPECITABINE [Suspect]
     Indication: GASTRIC CANCER
     Dosage: 1700MGM2 TWICE PER DAY
     Route: 048
     Dates: start: 20100514, end: 20100528
  3. OXALIPLATIN [Suspect]
     Indication: GASTRIC CANCER
     Dosage: 130MGM2 CYCLIC
     Route: 042
     Dates: start: 20100514, end: 20100514
  4. MULTI-VITAMIN [Concomitant]
     Route: 048
     Dates: start: 20100514
  5. OROFER [Concomitant]
     Route: 048
  6. ONDANSETRON [Concomitant]
     Indication: VOMITING
     Dosage: 8MG THREE TIMES PER DAY
     Route: 048

REACTIONS (6)
  - DEHYDRATION [None]
  - HYPONATRAEMIA [None]
  - HYPOTENSION [None]
  - MULTI-ORGAN FAILURE [None]
  - NEUTROPENIA [None]
  - SEPSIS [None]
